FAERS Safety Report 5870617-6 (Version None)
Quarter: 2008Q3

REPORT INFORMATION
  Report Type: 
  Country: None (occurrence: None)
  Receive Date: 20080904
  Receipt Date: 20080826
  Transmission Date: 20090109
  Serious: Yes (Death, Hospitalization)
  Sender: FDA-Public Use
  Company Number: B0534413A

PATIENT
  Age: 68 Year
  Sex: Male

DRUGS (9)
  1. AUGMENTIN '125' [Suspect]
     Indication: SIGMOIDITIS
     Dosage: 1G THREE TIMES PER DAY
     Route: 048
     Dates: start: 20080506, end: 20080517
  2. FORLAX [Concomitant]
     Indication: DRUG USE FOR UNKNOWN INDICATION
     Route: 048
     Dates: start: 20080506, end: 20080516
  3. VISCERALGINE [Concomitant]
     Indication: DRUG USE FOR UNKNOWN INDICATION
     Route: 048
     Dates: start: 20080506, end: 20080513
  4. SECALIP [Concomitant]
     Indication: DRUG USE FOR UNKNOWN INDICATION
     Route: 048
  5. NUCTALON [Concomitant]
     Indication: DRUG USE FOR UNKNOWN INDICATION
     Dosage: 2MG PER DAY
     Route: 048
  6. GENERAL ANESTHESIA MEDICATION UNKNOWN [Concomitant]
     Indication: SIGMOIDECTOMY
     Route: 065
     Dates: start: 20080516, end: 20080516
  7. EPIDURAL ANALGESIC UNKNOWN [Concomitant]
     Indication: SIGMOIDECTOMY
     Route: 065
     Dates: start: 20080516, end: 20080516
  8. LOVENOX [Concomitant]
     Indication: DRUG USE FOR UNKNOWN INDICATION
     Route: 065
  9. TANAKAN [Concomitant]
     Indication: DRUG USE FOR UNKNOWN INDICATION
     Route: 065

REACTIONS (15)
  - ACIDOSIS [None]
  - ACUTE RESPIRATORY DISTRESS SYNDROME [None]
  - CLOSTRIDIUM DIFFICILE COLITIS [None]
  - DEATH [None]
  - DEEP VEIN THROMBOSIS [None]
  - DIARRHOEA [None]
  - ENTEROBACTER SEPSIS [None]
  - FLUID RETENTION [None]
  - HYPOXIA [None]
  - INTERSTITIAL LUNG DISEASE [None]
  - LUNG INFECTION PSEUDOMONAL [None]
  - PLATELET COUNT DECREASED [None]
  - PSEUDOMEMBRANOUS COLITIS [None]
  - PULMONARY ARTERIAL HYPERTENSION [None]
  - RENAL IMPAIRMENT [None]
